FAERS Safety Report 5881309-1 (Version None)
Quarter: 2008Q3

REPORT INFORMATION
  Report Type: 
  Country: None (occurrence: None)
  Receive Date: 20080912
  Receipt Date: 20080708
  Transmission Date: 20090109
  Serious: No
  Sender: FDA-Public Use
  Company Number: US-ABBOTT-08P-163-0459716-00

PATIENT
  Sex: Female
  Weight: 104.54 kg

DRUGS (2)
  1. HUMIRA [Suspect]
     Indication: PITYRIASIS RUBRA PILARIS
     Route: 058
     Dates: start: 20080606, end: 20080606
  2. HUMIRA [Suspect]
     Route: 058
     Dates: start: 20080613

REACTIONS (1)
  - SKIN EXFOLIATION [None]
